FAERS Safety Report 8462933-9 (Version None)
Quarter: 2012Q2

REPORT INFORMATION
  Report Type: 
  Country: None (occurrence: None)
  Receive Date: 20120323
  Receipt Date: 20110812
  Transmission Date: 20120825
  Serious: Yes (Hospitalization)
  Sender: FDA-Public Use
  Company Number: 163-21880-11061730

PATIENT
  Age: 55 Year
  Sex: Female
  Weight: 95.6 kg

DRUGS (7)
  1. BENICAR [Concomitant]
  2. NEXIUM [Concomitant]
  3. GLIPIZIDE [Concomitant]
  4. ALBUTEROL [Concomitant]
  5. REVLIMID [Suspect]
     Indication: 5Q MINUS SYNDROME
     Dosage: 10 MG, 1 IN 1 D, PO;
     Route: 048
     Dates: start: 20110530, end: 20110609
  6. SINGULAIR [Concomitant]
  7. METFORMIN HCL [Concomitant]

REACTIONS (5)
  - PULMONARY EMBOLISM [None]
  - RASH PRURITIC [None]
  - HEADACHE [None]
  - NAUSEA [None]
  - DIARRHOEA [None]
